FAERS Safety Report 9399700 (Version 1)
Quarter: 2013Q3

REPORT INFORMATION
  Report Type: Spontaneous
  Country: DE (occurrence: DE)
  Receive Date: 20130715
  Receipt Date: 20130715
  Transmission Date: 20140515
  Serious: Yes (Hospitalization, Other)
  Sender: FDA-Public Use
  Company Number: DE-JNJFOC-20130703594

PATIENT
  Age: 74 Year
  Sex: Female
  Weight: 83 kg

DRUGS (16)
  1. XARELTO [Suspect]
     Indication: CEREBROVASCULAR ACCIDENT PROPHYLAXIS
     Route: 048
     Dates: start: 20130415, end: 20130625
  2. XARELTO [Suspect]
     Indication: ATRIAL FIBRILLATION
     Route: 048
     Dates: start: 20130415, end: 20130625
  3. IBUPROFEN [Concomitant]
     Route: 065
  4. TAPENTADOL HYDROCHLORIDE [Concomitant]
     Route: 065
     Dates: end: 20130611
  5. RAMIPRIL [Concomitant]
     Route: 065
  6. BISOPROLOL [Concomitant]
     Route: 065
  7. FERRO SANOL [Concomitant]
     Route: 065
  8. VIGANTOLETTEN [Concomitant]
     Route: 065
     Dates: start: 20130415
  9. TORASEMID [Concomitant]
     Route: 065
     Dates: start: 20130516
  10. XIPAMID [Concomitant]
     Dosage: 1 UNK,QOD
     Route: 065
     Dates: start: 20130523
  11. ZANIPRESS [Concomitant]
     Dosage: 10/10MG,1000 MG,QOD
     Route: 065
     Dates: start: 20130527
  12. VOMEX A [Concomitant]
     Route: 065
     Dates: start: 20130531
  13. OMEP [Concomitant]
     Route: 065
  14. JANUMET [Concomitant]
     Route: 065
     Dates: end: 20130625
  15. MCP [Concomitant]
     Route: 065
     Dates: start: 20130625
  16. GABAPENTIN [Concomitant]
     Route: 065
     Dates: end: 20130611

REACTIONS (4)
  - Dysphagia [Recovering/Resolving]
  - Syncope [Unknown]
  - Dysphagia [Recovering/Resolving]
  - Decreased appetite [Recovering/Resolving]
